FAERS Safety Report 9940046 (Version 1)
Quarter: 2014Q1

REPORT INFORMATION
  Report Type: Report from Study
  Country: US (occurrence: US)
  Receive Date: 20140303
  Receipt Date: 20140303
  Transmission Date: 20141002
  Serious: No
  Sender: FDA-Public Use
  Company Number: US-ABBVIE-13P-163-1036385-00

PATIENT
  Age: 43 Year
  Sex: Male

DRUGS (7)
  1. HUMIRA [Suspect]
     Indication: CROHN^S DISEASE
     Dates: start: 20130111
  2. MULTIVITAMIN [Concomitant]
     Indication: PRODUCT USED FOR UNKNOWN INDICATION
  3. ZYRTEC [Concomitant]
     Indication: SEASONAL ALLERGY
  4. PREDNISONE [Concomitant]
     Indication: ARTHRALGIA
     Dosage: 40 MG DAILY
     Dates: end: 20130113
  5. PREDNISONE [Concomitant]
     Dosage: 20 MG DAILY
     Dates: start: 20130114
  6. ALEVE [Concomitant]
     Indication: ARTHRALGIA
  7. ALEVE [Concomitant]

REACTIONS (4)
  - Injection site erythema [Not Recovered/Not Resolved]
  - Musculoskeletal stiffness [Not Recovered/Not Resolved]
  - Pain in extremity [Not Recovered/Not Resolved]
  - Arthralgia [Not Recovered/Not Resolved]
